FAERS Safety Report 9476372 (Version 5)
Quarter: 2015Q2

REPORT INFORMATION
  Report Type: Spontaneous
  Country: US (occurrence: US)
  Receive Date: 20130826
  Receipt Date: 20150525
  Transmission Date: 20150821
  Serious: Yes (Hospitalization)
  Sender: FDA-Public Use
  Company Number: US-JNJFOC-20130700585

PATIENT
  Sex: Female

DRUGS (10)
  1. TOPAMAX [Suspect]
     Active Substance: TOPIRAMATE
     Indication: GENERALISED ANXIETY DISORDER
     Route: 048
     Dates: start: 20070222, end: 20070301
  2. VALTREX [Suspect]
     Active Substance: VALACYCLOVIR HYDROCHLORIDE
     Indication: KERATOMILEUSIS
     Route: 065
  3. TOPAMAX [Suspect]
     Active Substance: TOPIRAMATE
     Indication: GENERALISED ANXIETY DISORDER
     Dosage: 100 MG EVERY MORNING AND 200 MG EVERY EVENING.
     Route: 048
  4. TOPAMAX [Suspect]
     Active Substance: TOPIRAMATE
     Indication: GENERALISED ANXIETY DISORDER
     Route: 048
     Dates: start: 20070214, end: 20070221
  5. CENTRUM MULTIVITAMINS [Concomitant]
     Active Substance: VITAMINS
     Indication: PRODUCT USED FOR UNKNOWN INDICATION
     Route: 065
  6. PRENATAL VITAMINS [Concomitant]
     Active Substance: VITAMINS
     Indication: PRENATAL CARE
     Route: 065
  7. TOPAMAX [Suspect]
     Active Substance: TOPIRAMATE
     Indication: GENERALISED ANXIETY DISORDER
     Route: 048
     Dates: start: 20070206, end: 20070213
  8. WELLBUTRIN XL [Suspect]
     Active Substance: BUPROPION HYDROCHLORIDE
     Indication: GENERALISED ANXIETY DISORDER
     Route: 048
  9. TOPAMAX [Suspect]
     Active Substance: TOPIRAMATE
     Indication: GENERALISED ANXIETY DISORDER
     Dosage: 100 MG EVERY MORNING AND 200 MG EVERY EVENING.
     Route: 048
     Dates: end: 200701
  10. TOPAMAX [Suspect]
     Active Substance: TOPIRAMATE
     Indication: GENERALISED ANXIETY DISORDER
     Route: 048
     Dates: start: 20070129, end: 20070205

REACTIONS (2)
  - Exposure during pregnancy [Recovered/Resolved]
  - Emotional disorder [Unknown]
